FAERS Safety Report 7604493-8 (Version None)
Quarter: 2011Q3

REPORT INFORMATION
  Report Type: 
  Country: None (occurrence: None)
  Receive Date: 20110712
  Receipt Date: 20110630
  Transmission Date: 20111222
  Serious: Yes (Hospitalization)
  Sender: FDA-Public Use
  Company Number: FR-ASTRAZENECA-2011SE40010

PATIENT
  Age: 66 Year
  Sex: Male

DRUGS (8)
  1. CLARITHROMYCIN [Suspect]
     Route: 048
     Dates: start: 20100817, end: 20100818
  2. PERINDOPRIL ERBUMINE [Concomitant]
  3. METOPROLOL TARTRATE [Concomitant]
  4. AMOXICILLIN [Suspect]
     Route: 048
     Dates: start: 20100817, end: 20100818
  5. ASPIRIN [Concomitant]
  6. CRESTOR [Concomitant]
  7. OMEPRAZOLE [Suspect]
     Route: 048
     Dates: start: 20100817, end: 20100818
  8. PLAVIX [Suspect]
     Route: 065

REACTIONS (5)
  - HYPOTENSION [None]
  - ERYTHEMA [None]
  - MYALGIA [None]
  - CHILLS [None]
  - FEELING HOT [None]
